FAERS Safety Report 17653597 (Version 1)
Quarter: 2020Q2

REPORT INFORMATION
  Report Type: Spontaneous
  Country: US (occurrence: US)
  Receive Date: 20200410
  Receipt Date: 20200410
  Transmission Date: 20200713
  Serious: No
  Sender: FDA-Public Use
  Company Number: US-SA-2020SA087430

PATIENT
  Sex: Female
  Weight: 97.5 kg

DRUGS (7)
  1. FABRAZYME [Suspect]
     Active Substance: AGALSIDASE BETA
     Indication: FABRY^S DISEASE
     Dosage: 1.025 MG/KG, QOW
     Route: 042
     Dates: start: 20101222
  2. NORMAL SALINE [Concomitant]
     Active Substance: SODIUM CHLORIDE
     Route: 065
  3. LO LOESTRIN FE [Concomitant]
     Active Substance: ETHINYL ESTRADIOL\NORETHINDRONE ACETATE
     Route: 065
  4. STERILE WATER [Concomitant]
     Active Substance: WATER
     Route: 065
  5. AMLODIPINE;ATORVASTATIN [Concomitant]
     Route: 065
  6. EPINEPHRINE. [Concomitant]
     Active Substance: EPINEPHRINE
     Route: 065
  7. MULTIVITAMINS [VITAMINS NOS] [Concomitant]
     Active Substance: VITAMINS
     Route: 065

REACTIONS (1)
  - Product dose omission [Unknown]
